FAERS Safety Report 23797651 (Version 1)
Quarter: 2024Q2

REPORT INFORMATION
  Report Type: Spontaneous
  Country: ZA (occurrence: None)
  Receive Date: 20240430
  Receipt Date: 20240430
  Transmission Date: 20240716
  Serious: Yes (Hospitalization)
  Sender: FDA-Public Use
  Company Number: 2024A097200

PATIENT
  Age: 65 Year
  Sex: Female

DRUGS (10)
  1. DAPAGLIFLOZIN PROPANEDIOL [Suspect]
     Active Substance: DAPAGLIFLOZIN PROPANEDIOL
     Route: 048
  2. ZITHROLIDE [Concomitant]
  3. REUTERINA ACUTE [Concomitant]
  4. ANDOLEX-C [Concomitant]
  5. FIASP [Concomitant]
     Active Substance: INSULIN ASPART
  6. PREXUM 5 PLUS [Concomitant]
  7. ECOTRIN [Concomitant]
     Active Substance: ASPIRIN
  8. EUTHYROX [Concomitant]
     Active Substance: LEVOTHYROXINE SODIUM
  9. PRAVAFEN [Concomitant]
  10. GLICLAZIDE [Concomitant]
     Active Substance: GLICLAZIDE

REACTIONS (1)
  - Renal disorder [Unknown]
